FAERS Safety Report 9626204 (Version 1)
Quarter: 2013Q4

REPORT INFORMATION
  Report Type: Spontaneous
  Country: CA (occurrence: CA)
  Receive Date: 20131016
  Receipt Date: 20131016
  Transmission Date: 20140711
  Serious: Yes (Other)
  Sender: FDA-Public Use
  Company Number: CA-PFIZER INC-2013292329

PATIENT
  Sex: Female

DRUGS (1)
  1. ETHINYLESTRADIOL\LEVONORGESTREL [Suspect]

REACTIONS (3)
  - Hyperthyroidism [Recovered/Resolved]
  - Malaise [Unknown]
  - Menstruation delayed [Not Recovered/Not Resolved]
